FAERS Safety Report 4415112-6 (Version None)
Quarter: 2004Q3

REPORT INFORMATION
  Report Type: 
  Country: None (occurrence: None)
  Receive Date: 20040802
  Receipt Date: 20040727
  Transmission Date: 20050211
  Serious: Yes (Other)
  Sender: FDA-Public Use
  Company Number: 002022

PATIENT
  Sex: Female

DRUGS (6)
  1. MEDROXYPROGESTERONE ACETATE [Suspect]
     Indication: HORMONE REPLACEMENT THERAPY
  2. ESTRADIOL [Suspect]
     Indication: HORMONE REPLACEMENT THERAPY
  3. ESTRACE [Suspect]
     Indication: HORMONE REPLACEMENT THERAPY
  4. MEDROXYPROGESTERONE ACETATE [Suspect]
  5. PREMARIN [Suspect]
  6. PROVERA [Suspect]

REACTIONS (1)
  - BREAST CANCER IN SITU [None]
